FAERS Safety Report 14204823 (Version 1)
Quarter: 2017Q4

REPORT INFORMATION
  Report Type: Spontaneous
  Country: US (occurrence: US)
  Receive Date: 20171118
  Receipt Date: 20171118
  Transmission Date: 20180321
  Serious: No
  Sender: FDA-Public Use
  Company Number: None

PATIENT
  Age: 37 Year
  Sex: Female
  Weight: 72 kg

DRUGS (3)
  1. FLUOXETINE [Concomitant]
     Active Substance: FLUOXETINE HYDROCHLORIDE
  2. FLUTICASONE. [Concomitant]
     Active Substance: FLUTICASONE
  3. REXALL SINUS NASAL PUMP MIST [Suspect]
     Active Substance: OXYMETAZOLINE HYDROCHLORIDE
     Indication: PARANASAL SINUS DISCOMFORT
     Dosage: ?          QUANTITY:2 SPRAY(S);?
     Route: 055

REACTIONS (6)
  - Nasal discomfort [None]
  - Lacrimation increased [None]
  - Hypersensitivity [None]
  - Pain [None]
  - Sensory disturbance [None]
  - Rhinorrhoea [None]

NARRATIVE: CASE EVENT DATE: 20171101
